FAERS Safety Report 21634473 (Version 1)
Quarter: 2022Q4

REPORT INFORMATION
  Report Type: Spontaneous
  Country: CN (occurrence: CN)
  Receive Date: 20221123
  Receipt Date: 20221123
  Transmission Date: 20230113
  Serious: Yes (Other)
  Sender: FDA-Public Use
  Company Number: CN-PFIZER INC-PV202200107196

PATIENT
  Age: 12 Year
  Sex: Female
  Weight: 52 kg

DRUGS (5)
  1. SOLU-MEDROL [Suspect]
     Active Substance: METHYLPREDNISOLONE SODIUM SUCCINATE
     Indication: Hormone therapy
     Dosage: 80 MG, 1X/DAY
     Route: 041
     Dates: start: 20221109, end: 20221109
  2. METHYLCOBALAMIN [Suspect]
     Active Substance: METHYLCOBALAMIN
     Indication: Therapeutic procedure
     Dosage: 0.5 ML, 1X/DAY
     Route: 040
     Dates: start: 20221109, end: 20221109
  3. GINKGO [Suspect]
     Active Substance: GINKGO
     Indication: Therapeutic procedure
     Dosage: 10 ML, 2X/DAY
     Route: 041
     Dates: start: 20221109, end: 20221109
  4. SODIUM CHLORIDE [Concomitant]
     Active Substance: SODIUM CHLORIDE
     Indication: Vehicle solution use
     Dosage: 250 ML, 2X/DAY
     Route: 041
     Dates: start: 20221109, end: 20221109
  5. DEXTROSE [Concomitant]
     Active Substance: DEXTROSE
     Indication: Vehicle solution use
     Dosage: 100 ML, 1X/DAY
     Route: 041
     Dates: start: 20221109, end: 20221109

REACTIONS (3)
  - Headache [Recovering/Resolving]
  - Nausea [Recovering/Resolving]
  - Vomiting [Recovering/Resolving]

NARRATIVE: CASE EVENT DATE: 20221109
